FAERS Safety Report 8345605-0 (Version None)
Quarter: 2012Q2

REPORT INFORMATION
  Report Type: 
  Country: None (occurrence: None)
  Receive Date: 20120508
  Receipt Date: 20120424
  Transmission Date: 20120825
  Serious: Yes (Hospitalization, Other)
  Sender: FDA-Public Use
  Company Number: JP-ROCHE-1040410

PATIENT
  Sex: Female
  Weight: 47 kg

DRUGS (4)
  1. OMALIZUMAB [Suspect]
     Indication: ASTHMA
     Route: 058
     Dates: start: 20120209, end: 20120209
  2. MUCOSTA [Concomitant]
  3. SYMBICORT [Concomitant]
  4. BETAMETHASONE [Concomitant]

REACTIONS (2)
  - ASTHMA [None]
  - ANAPHYLACTIC REACTION [None]
